FAERS Safety Report 6410983-6 (Version None)
Quarter: 2009Q4

REPORT INFORMATION
  Report Type: 
  Country: None (occurrence: None)
  Receive Date: 20091022
  Receipt Date: 20091014
  Transmission Date: 20100525
  Serious: Yes (Death, Hospitalization, Other)
  Sender: FDA-Public Use
  Company Number: US-BAXTER-2009BH014971

PATIENT
  Sex: Female

DRUGS (1)
  1. DIANEAL [Suspect]
     Indication: PERITONEAL DIALYSIS
     Route: 033
     Dates: start: 20090617, end: 20091006

REACTIONS (5)
  - DEATH [None]
  - HYPOTENSION [None]
  - MULTI-ORGAN DISORDER [None]
  - PNEUMONIA ASPIRATION [None]
  - WEIGHT DECREASED [None]
